FAERS Safety Report 21246769 (Version 1)
Quarter: 2022Q3

REPORT INFORMATION
  Report Type: Spontaneous
  Country: CN (occurrence: CN)
  Receive Date: 20220824
  Receipt Date: 20220824
  Transmission Date: 20221026
  Serious: Yes (Other)
  Sender: FDA-Public Use
  Company Number: CN-JNJFOC-20220833947

PATIENT

DRUGS (2)
  1. IBUPROFEN [Suspect]
     Active Substance: IBUPROFEN
     Indication: Patent ductus arteriosus
     Dosage: ON THE FIRST DAY
     Route: 048
  2. IBUPROFEN [Suspect]
     Active Substance: IBUPROFEN
     Dosage: EVERY 24 H
     Route: 048

REACTIONS (7)
  - Bronchopulmonary dysplasia [Unknown]
  - Necrotising colitis [Unknown]
  - Retinopathy of prematurity [Unknown]
  - Intraventricular haemorrhage [Unknown]
  - Off label use [Unknown]
  - Angiogenesis biomarker decreased [Unknown]
  - Therapeutic response unexpected [Unknown]
